APPROVED DRUG PRODUCT: RUBRAMIN PC
Active Ingredient: CYANOCOBALAMIN
Strength: 1MG/ML **Federal Register determination that product was not discontinued or withdrawn for safety or effectiveness reasons**
Dosage Form/Route: INJECTABLE;INJECTION
Application: N006799 | Product #010
Applicant: BRISTOL MYERS SQUIBB CO
Approved: Apr 28, 1988 | RLD: Yes | RS: No | Type: DISCN